FAERS Safety Report 10038662 (Version 1)
Quarter: 2014Q1

REPORT INFORMATION
  Report Type: Spontaneous
  Country: US (occurrence: None)
  Receive Date: 20140306
  Receipt Date: 20140306
  Transmission Date: 20141002
  Serious: Yes (Other)
  Sender: FDA-Public Use
  Company Number: 163-21880-12053723

PATIENT
  Age: 78 Year
  Sex: Female

DRUGS (3)
  1. REVLIMID (LENALIDOMIDE) (CAPSULES) [Suspect]
     Indication: PLASMA CELL MYELOMA
     Dosage: 10MG, 1 IN 1D, PO
     Dates: start: 20110418
  2. SPIRIVA (TIOTROPIUM BROMIDE) (CAPSULES) [Concomitant]
  3. DEXAMETHASONE (DEXAMETHASONE) [Concomitant]

REACTIONS (2)
  - Lung squamous cell carcinoma recurrent [None]
  - Neutropenia [None]
